FAERS Safety Report 9464996 (Version 2)
Quarter: 2013Q3

REPORT INFORMATION
  Report Type: Report from Study
  Country: DE (occurrence: DE)
  Receive Date: 20130819
  Receipt Date: 20130905
  Transmission Date: 20140515
  Serious: Yes (Hospitalization)
  Sender: FDA-Public Use
  Company Number: DE-ROCHE-1261720

PATIENT
  Age: 46 Year
  Sex: Female
  Weight: 66 kg

DRUGS (4)
  1. RITUXIMAB [Suspect]
     Indication: B-CELL LYMPHOMA
     Dosage: DATE OF LAST DOSE PRIOR TO SAE: 23/MAY/2013
     Route: 042
     Dates: start: 20130111, end: 20130722
  2. BENDAMUSTINE [Suspect]
     Indication: B-CELL LYMPHOMA
     Route: 042
     Dates: start: 20120425, end: 20120920
  3. PANTOPRAZOLE [Concomitant]
     Route: 065
  4. LORAZEPAM [Concomitant]
     Route: 065

REACTIONS (3)
  - Thrombosis in device [Recovered/Resolved]
  - Device related infection [Recovered/Resolved]
  - Neutropenia [Recovered/Resolved]
